FAERS Safety Report 8742202 (Version 2)
Quarter: 2012Q4

REPORT INFORMATION
  Report Type: 
  Country: NL (occurrence: NL)
  Receive Date: 20120824
  Receipt Date: 20121002
  Transmission Date: 20130627
  Serious: Yes (Hospitalization)
  Sender: FDA-Public Use
  Company Number: PHHY2012NL072817

PATIENT
  Age: 70 Year
  Sex: Female
  Weight: 85 kg

DRUGS (24)
  1. SANDOSTATINE LAR [Suspect]
     Indication: GASTROINTESTINAL CARCINOMA
     Dosage: 30 mg once every 4 weeks
  2. LACTULOSE [Concomitant]
     Dosage: 30 ml, once daily
     Route: 048
     Dates: start: 20120106, end: 20120811
  3. GLICLAZIDE [Concomitant]
     Dosage: 1 DF, QD
     Route: 048
     Dates: start: 20120424, end: 20120722
  4. ACENOCOUMAROL [Concomitant]
     Route: 048
     Dates: start: 20120613, end: 20120619
  5. AMITRIPTYLINE [Concomitant]
     Dosage: 3 DF, BID
     Route: 048
     Dates: start: 20120221, end: 20120321
  6. AMITRIPTYLINE HYDROCHLORIDE [Concomitant]
     Dosage: 3 DF, QD
     Route: 048
     Dates: start: 20120510, end: 20120807
  7. TEMAZEPAM [Concomitant]
     Dosage: 1 DF, QD
     Route: 048
     Dates: start: 20120619, end: 20120718
  8. HYDROXYZINE HYDROCHLORIDE [Concomitant]
     Indication: PHOTOSENSITIVITY REACTION
     Dosage: 3 DF, QD
     Dates: start: 20120607, end: 20120722
  9. PREDNISONE [Concomitant]
     Indication: HYPERSENSITIVITY
     Dosage: 30 mg, UNK
     Dates: start: 20120629, end: 20120706
  10. LORMETAZEPAM [Concomitant]
     Dosage: 1 DF, QD
     Route: 048
     Dates: start: 20120619, end: 20120718
  11. FAMOTIDINE [Concomitant]
     Dosage: 1 DF, QD
     Route: 048
     Dates: start: 20120424, end: 20120722
  12. METOPROLOL [Concomitant]
     Route: 048
     Dates: start: 20110914, end: 20120311
  13. VERAPAMIL HYDROCHLORIDE [Concomitant]
     Route: 048
  14. CARBOMER [Concomitant]
     Dosage: UNK UKN, UNK
     Dates: start: 20111122, end: 20120120
  15. SALBUTAMOL [Concomitant]
     Dosage: 4 DF, 4 times daily 1 puff
  16. CLOPIDOGREL [Concomitant]
     Dosage: UNK UKN, UNK
     Route: 048
     Dates: start: 20110914, end: 20120311
  17. IRBESARTAN [Concomitant]
     Dosage: 1 DF, QD (150/12.5mg)
     Route: 048
  18. TIOTROPIUM [Concomitant]
     Dosage: 1 DF, QD
  19. PARACETAMOL [Concomitant]
     Dosage: 4 DF, BID
     Route: 048
     Dates: start: 20110706, end: 20120101
  20. HYDROCORTISONE CREAM [Concomitant]
     Dosage: UNK UKN, UNK
     Route: 003
  21. PREGABALIN [Concomitant]
     Dosage: UNK UKN, UNK
     Route: 048
     Dates: start: 20110706, end: 20120101
  22. VASELINE [Concomitant]
     Route: 003
     Dates: start: 20120103, end: 20120630
  23. BECLOMET [Concomitant]
     Dosage: 1 DF, BID
  24. INSULIN GLARGINE [Concomitant]
     Dosage: UNK UKN, UNK
     Route: 058

REACTIONS (2)
  - Chest discomfort [Not Recovered/Not Resolved]
  - Abdominal pain upper [Not Recovered/Not Resolved]
